FAERS Safety Report 5132098-X (Version None)
Quarter: 2006Q4

REPORT INFORMATION
  Report Type: 
  Country: None (occurrence: None)
  Receive Date: 20061017
  Receipt Date: 20061006
  Transmission Date: 20070319
  Serious: Yes (Hospitalization)
  Sender: FDA-Public Use
  Company Number: HQWYE810209OCT06

PATIENT
  Age: 63 Year
  Sex: Male

DRUGS (9)
  1. RAPAMUNE [Suspect]
     Dosage: 1 MG 1X PER 1 DAY, ORAL
     Route: 048
     Dates: start: 20050810, end: 20060211
  2. NEXIUM [Concomitant]
  3. ASPIRIN [Concomitant]
  4. CYCLOSPORINE [Concomitant]
  5. CARDIZEM [Concomitant]
  6. HUMULIN N [Concomitant]
  7. LYRICA [Concomitant]
  8. HYDRALAZINE HCL [Concomitant]
  9. HUMALOG [Concomitant]

REACTIONS (6)
  - ASTHENIA [None]
  - FALL [None]
  - GASTROINTESTINAL ULCER [None]
  - LOSS OF CONSCIOUSNESS [None]
  - NAUSEA [None]
  - VOMITING [None]
